FAERS Safety Report 6295124-0 (Version None)
Quarter: 2009Q3

REPORT INFORMATION
  Report Type: 
  Country: None (occurrence: None)
  Receive Date: 20090803
  Receipt Date: 20090724
  Transmission Date: 20100115
  Serious: Yes (Hospitalization)
  Sender: FDA-Public Use
  Company Number: PHEH2009US04526

PATIENT
  Sex: Female

DRUGS (2)
  1. EXJADE [Suspect]
     Indication: BREAST CANCER
     Dosage: 1000 MG DAILY
     Route: 048
     Dates: start: 20090422, end: 20090430
  2. DIURETICS [Concomitant]
     Indication: OEDEMA PERIPHERAL

REACTIONS (5)
  - CONSTIPATION [None]
  - ILEUS [None]
  - NAUSEA [None]
  - OEDEMA PERIPHERAL [None]
  - WEIGHT DECREASED [None]
